FAERS Safety Report 17054068 (Version 6)
Quarter: 2022Q2

REPORT INFORMATION
  Report Type: Spontaneous
  Country: US (occurrence: US)
  Receive Date: 20191120
  Receipt Date: 20220401
  Transmission Date: 20220721
  Serious: No
  Sender: FDA-Public Use
  Company Number: US-PFIZER INC-2019500468

PATIENT
  Age: 61 Year
  Sex: Female
  Weight: 117.91 kg

DRUGS (3)
  1. IBRANCE [Suspect]
     Active Substance: PALBOCICLIB
     Indication: Breast cancer metastatic
     Dosage: 125 MG, CYCLIC (21 DAYS 7 DAYS OFF)
     Dates: start: 20191110
  2. IBRANCE [Suspect]
     Active Substance: PALBOCICLIB
     Dosage: 125 MG, CYCLIC (AT AROUND 6PM. SHE TAKES IT 3 WEEK ON AND 1 WEEK OFF)
     Dates: start: 2019
  3. METOPROLOL [Concomitant]
     Active Substance: METOPROLOL
     Dosage: 50 MG

REACTIONS (6)
  - Stomatitis [Not Recovered/Not Resolved]
  - Nausea [Not Recovered/Not Resolved]
  - Dyspepsia [Not Recovered/Not Resolved]
  - Abdominal discomfort [Unknown]
  - Diarrhoea [Not Recovered/Not Resolved]
  - Condition aggravated [Not Recovered/Not Resolved]

NARRATIVE: CASE EVENT DATE: 20200101
